FAERS Safety Report 13998290 (Version 1)
Quarter: 2017Q3

REPORT INFORMATION
  Report Type: Report from Study
  Country: US (occurrence: US)
  Receive Date: 20170921
  Receipt Date: 20170921
  Transmission Date: 20171128
  Serious: Yes (Other)
  Sender: FDA-Public Use
  Company Number: PHHY2017US137024

PATIENT
  Sex: Female

DRUGS (1)
  1. SYSTANE (HYPROMELLOSE 2910 (4000 MPA.S)) [Suspect]
     Active Substance: HYPROMELLOSE 2910 (4000 MPA.S)
     Indication: PRODUCT USED FOR UNKNOWN INDICATION
     Route: 065

REACTIONS (9)
  - Pain [Unknown]
  - Post-traumatic neck syndrome [Unknown]
  - Fall [Unknown]
  - Hypokinesia [Unknown]
  - Myocardial infarction [Unknown]
  - Ligament sprain [Unknown]
  - Joint injury [Unknown]
  - Dry eye [Unknown]
  - Pain in extremity [Unknown]
